FAERS Safety Report 11403150 (Version 1)
Quarter: 2015Q3

REPORT INFORMATION
  Report Type: Spontaneous
  Country: US (occurrence: US)
  Receive Date: 20150821
  Receipt Date: 20150821
  Transmission Date: 20151125
  Serious: No
  Sender: FDA-Public Use
  Company Number: US-ROCHE-1279241

PATIENT
  Sex: Female

DRUGS (3)
  1. PEGASYS [Suspect]
     Active Substance: PEGINTERFERON ALFA-2A
     Indication: CHRONIC HEPATITIS C
     Route: 058
     Dates: start: 20130918
  2. RIBASPHERE [Suspect]
     Active Substance: RIBAVIRIN
     Indication: CHRONIC HEPATITIS C
     Dosage: TWO DIVIDED DOSES (600MG + 600MG)
     Route: 048
     Dates: start: 20130918
  3. BOCEPREVIR [Suspect]
     Active Substance: BOCEPREVIR
     Indication: CHRONIC HEPATITIS C
     Route: 065
     Dates: start: 20130918

REACTIONS (11)
  - Pain in extremity [Unknown]
  - Pruritus [Unknown]
  - Back pain [Unknown]
  - Insomnia [Unknown]
  - Dry skin [Unknown]
  - Injection site pain [Unknown]
  - Injection site bruising [Unknown]
  - Abdominal pain upper [Unknown]
  - Myalgia [Unknown]
  - Injection site discharge [Unknown]
  - Abdominal distension [Unknown]
